FAERS Safety Report 6717456-1 (Version None)
Quarter: 2010Q2

REPORT INFORMATION
  Report Type: 
  Country: None (occurrence: None)
  Receive Date: 20100505
  Receipt Date: 20100420
  Transmission Date: 20101027
  Serious: Yes (Other)
  Sender: FDA-Public Use
  Company Number: B0650475A

PATIENT
  Age: 5 Year
  Sex: 0

DRUGS (13)
  1. CARBOPLATIN [Suspect]
     Indication: MEDULLOBLASTOMA
     Dosage: 500 MG/M2 / PER DAY / INTRAVENOUS
     Route: 042
  2. ETOPOSIDE [Suspect]
     Indication: MEDULLOBLASTOMA
     Dosage: 250 MG/M2 / PER DAY / INTRAVENOUS
     Route: 042
  3. MELPHALAN HYDROCHLORIDE [Suspect]
     Indication: MEDULLOBLASTOMA
  4. THIOTEPA [Suspect]
     Indication: MEDULLOBLASTOMA
     Dosage: 300 MG/M2 / PER DAY / INTRAVENOUS
     Route: 042
  5. CYCLOPHOSPHAMIDE [Suspect]
     Indication: MEDULLOBLASTOMA
     Dosage: INTRAVENOUS
     Route: 042
  6. GRANULOCYTE COL.STIM.FACT INJECTION (GRANULOCYTE COL.STIM.FACT) [Suspect]
     Dosage: INTRAVENOUS
     Route: 042
  7. AUTO STEM CELL INFUSION INFUSION (AUTO STEM CELL INFUSION) [Suspect]
     Dosage: INTRAVENOUS
     Route: 042
  8. MESNA [Suspect]
     Indication: MEDULLOBLASTOMA
     Dosage: 300 MG/M2 / PER DAY /
  9. ACYCLOVIR [Concomitant]
  10. PENTAMIDINE ISETHIONATE [Concomitant]
  11. PAIN MEDICATION [Concomitant]
  12. RED BLOOD CELLS [Concomitant]
  13. FLUCONAZOLE [Concomitant]

REACTIONS (4)
  - HAEMATOTOXICITY [None]
  - MUCOSAL INFLAMMATION [None]
  - NEUTROPENIA [None]
  - SEPSIS [None]
